FAERS Safety Report 9556205 (Version 2)
Quarter: 2013Q3

REPORT INFORMATION
  Report Type: Report from Study
  Country: US (occurrence: US)
  Receive Date: 20130926
  Receipt Date: 20130926
  Transmission Date: 20140515
  Serious: Yes (Hospitalization, Other)
  Sender: FDA-Public Use
  Company Number: US-ABBVIE-13P-163-1137139-00

PATIENT
  Sex: Female

DRUGS (11)
  1. HUMIRA [Suspect]
     Indication: RHEUMATOID ARTHRITIS
     Dates: start: 20130620
  2. GABAPENTIN [Concomitant]
     Indication: PRODUCT USED FOR UNKNOWN INDICATION
  3. FOLIC [Concomitant]
     Indication: PRODUCT USED FOR UNKNOWN INDICATION
  4. MELOXICAM [Concomitant]
     Indication: ARTHRALGIA
  5. MELOXICAM [Concomitant]
     Dosage: INCREASED DOSE
     Dates: start: 20130808
  6. CETIRIZINE [Concomitant]
     Indication: PRODUCT USED FOR UNKNOWN INDICATION
  7. METHOTREXATE [Concomitant]
     Indication: PRODUCT USED FOR UNKNOWN INDICATION
  8. PREDNISONE [Concomitant]
     Indication: PRODUCT USED FOR UNKNOWN INDICATION
  9. PREDNISONE [Concomitant]
     Dosage: TAPERING
  10. OYSTER SHELL CALCIUM W/D [Concomitant]
     Indication: BLOOD CALCIUM DECREASED
     Dosage: 500 OR 600MG DAILY
  11. NICOTINE [Concomitant]
     Indication: EX-TOBACCO USER
     Dosage: SPRAY

REACTIONS (4)
  - Osteoarthritis [Unknown]
  - Arthropathy [Recovering/Resolving]
  - Muscle spasms [Unknown]
  - Pain [Unknown]
